FAERS Safety Report 7018398-7 (Version None)
Quarter: 2010Q3

REPORT INFORMATION
  Report Type: 
  Country: None (occurrence: None)
  Receive Date: 20100928
  Receipt Date: 20100920
  Transmission Date: 20110219
  Serious: Yes (Other)
  Sender: FDA-Public Use
  Company Number: PHHY2010BR33141

PATIENT
  Sex: Female
  Weight: 67 kg

DRUGS (6)
  1. EXELON [Suspect]
     Indication: DEMENTIA ALZHEIMER'S TYPE
     Dosage: 1 DF, BID
     Dates: start: 20100516
  2. METFORMIN HYDROCHLORIDE [Concomitant]
     Indication: DIABETES MELLITUS
     Dosage: 2 TABLETS DAILY
     Route: 048
     Dates: start: 20070101
  3. METOPROLOL SUCCINATE [Concomitant]
     Indication: CARDIAC DISORDER
     Dosage: 1 TABLET DAILY
     Route: 048
  4. DIAMICRON MR [Concomitant]
     Indication: DIABETES MELLITUS
     Dosage: 1 TABLET IN THE MORNING
     Route: 048
  5. ENALAPRIL MALEATE [Concomitant]
     Indication: CARDIAC DISORDER
     Dosage: 1 TABLET AT NIGHT
     Route: 048
  6. SIMVASTATIN [Concomitant]
     Indication: BLOOD CHOLESTEROL
     Dosage: 1 TABLET PER DAY IN ALTERNATE DAYS
     Route: 048

REACTIONS (11)
  - CONFUSIONAL STATE [None]
  - DECREASED APPETITE [None]
  - DIARRHOEA [None]
  - DISORIENTATION [None]
  - DIZZINESS [None]
  - FEELING ABNORMAL [None]
  - HEADACHE [None]
  - HYPERTENSION [None]
  - MALAISE [None]
  - NAUSEA [None]
  - VOMITING [None]
